FAERS Safety Report 8132474-7 (Version None)
Quarter: 2012Q1

REPORT INFORMATION
  Report Type: 
  Country: None (occurrence: None)
  Receive Date: 20120103
  Receipt Date: 20110917
  Transmission Date: 20120608
  Serious: No
  Sender: FDA-Public Use
  Company Number: AE-2011-001633

PATIENT
  Sex: Male

DRUGS (3)
  1. INCIVEK [Suspect]
     Dosage: (3 IN 1 D)
     Dates: start: 20110621, end: 20110915
  2. PEGINTERFERON (PEGINTERFERON ALFA-2A) [Concomitant]
  3. RIBAVIRIN [Concomitant]

REACTIONS (4)
  - INSOMNIA [None]
  - AGITATION [None]
  - RASH [None]
  - PRURITUS [None]
